FAERS Safety Report 23404469 (Version 5)
Quarter: 2024Q4

REPORT INFORMATION
  Report Type: Spontaneous
  Country: CA (occurrence: CA)
  Receive Date: 20240116
  Receipt Date: 20241006
  Transmission Date: 20250115
  Serious: Yes (Other)
  Sender: ORGANON
  Company Number: CA-ORGANON-O2401CAN000986

PATIENT
  Age: 18 Year
  Sex: Female

DRUGS (2)
  1. REMERON [Suspect]
     Active Substance: MIRTAZAPINE
     Indication: Depression
     Dosage: 30 MG DAILY (QD) FOR ABOUT 5 MONTHS
     Route: 048
  2. REMERON [Suspect]
     Active Substance: MIRTAZAPINE
     Dosage: INCREASED TO 45 MG DAILY ABOUT 1 MONTH
     Route: 048

REACTIONS (1)
  - Intracranial pressure increased [Recovered/Resolved]
